FAERS Safety Report 19566240 (Version 5)
Quarter: 2022Q4

REPORT INFORMATION
  Report Type: Spontaneous
  Country: CN (occurrence: CN)
  Receive Date: 20210714
  Receipt Date: 20221216
  Transmission Date: 20230113
  Serious: Yes (Hospitalization, Other)
  Sender: FDA-Public Use
  Company Number: CN-ABBVIE-21K-035-3982800-00

PATIENT
  Age: 28 Year
  Sex: Male
  Weight: 69 kg

DRUGS (7)
  1. HUMIRA [Suspect]
     Active Substance: ADALIMUMAB
     Indication: Psoriasis
     Dosage: 80 MILLIGRAM
     Route: 058
     Dates: start: 20210113, end: 20210113
  2. HUMIRA [Suspect]
     Active Substance: ADALIMUMAB
     Dosage: 40 MILLIGRAM
     Route: 058
     Dates: start: 20210120, end: 20210120
  3. HUMIRA [Suspect]
     Active Substance: ADALIMUMAB
     Dosage: 40 MILLIGRAM
     Route: 058
     Dates: start: 20210203, end: 20210203
  4. HUMIRA [Suspect]
     Active Substance: ADALIMUMAB
     Dosage: 40 MILLIGRAM
     Route: 058
     Dates: start: 20210218, end: 20210218
  5. HUMIRA [Suspect]
     Active Substance: ADALIMUMAB
     Dosage: 40 MILLIGRAM
     Route: 058
     Dates: start: 20210303, end: 20210303
  6. HUMIRA [Suspect]
     Active Substance: ADALIMUMAB
     Dosage: 40 MILLIGRAM
     Route: 058
     Dates: start: 20210317, end: 20210317
  7. HUMIRA [Suspect]
     Active Substance: ADALIMUMAB
     Dosage: 40 MILLIGRAM
     Route: 058
     Dates: start: 20210331, end: 20210331

REACTIONS (29)
  - Haemophagocytic lymphohistiocytosis [Recovering/Resolving]
  - Renal failure [Unknown]
  - Disseminated tuberculosis [Recovering/Resolving]
  - Pancytopenia [Unknown]
  - Coagulation test abnormal [Unknown]
  - General physical health deterioration [Unknown]
  - Weight decreased [Unknown]
  - Decreased appetite [Unknown]
  - Nephritis [Unknown]
  - Liver injury [Unknown]
  - Pulmonary mass [Unknown]
  - Myoglobin blood increased [Unknown]
  - Hypochloraemia [Unknown]
  - Splenomegaly [Unknown]
  - Marrow hyperplasia [Unknown]
  - Blood bilirubin increased [Unknown]
  - Hypoacusis [Unknown]
  - Pneumonitis [Unknown]
  - Flatulence [Unknown]
  - Sinus tachycardia [Unknown]
  - Insomnia [Unknown]
  - Blood lactate dehydrogenase increased [Unknown]
  - Hypokalaemia [Unknown]
  - Hyponatraemia [Unknown]
  - White blood cell count decreased [Unknown]
  - Heart rate increased [Unknown]
  - Tremor [Unknown]
  - Diarrhoea [Unknown]
  - Fungal infection [Unknown]

NARRATIVE: CASE EVENT DATE: 20210331
